FAERS Safety Report 16982772 (Version 2)
Quarter: 2019Q4

REPORT INFORMATION
  Report Type: Spontaneous
  Country: JP (occurrence: JP)
  Receive Date: 20191101
  Receipt Date: 20191220
  Transmission Date: 20200122
  Serious: Yes (Life-Threatening, Hospitalization)
  Sender: FDA-Public Use
  Company Number: JP-EISAI MEDICAL RESEARCH-EC-2019-064432

PATIENT
  Age: 58 Year
  Sex: Male
  Weight: 60 kg

DRUGS (3)
  1. LENVIMA [Suspect]
     Active Substance: LENVATINIB
     Indication: HEPATOCELLULAR CARCINOMA
     Route: 048
     Dates: start: 20190902, end: 20190904
  2. LENVIMA [Suspect]
     Active Substance: LENVATINIB
     Dosage: 4MG, 5 DAYS ON/2 DAYS OFF
     Route: 048
     Dates: start: 20190909, end: 20190930
  3. BAYASPIRIN [Concomitant]
     Active Substance: ASPIRIN
     Indication: THROMBOSIS PROPHYLAXIS
     Dosage: DOSE AND FREQUENCY UNKNOWN
     Route: 048

REACTIONS (5)
  - Seizure [Recovering/Resolving]
  - Malaise [Recovering/Resolving]
  - Depressed level of consciousness [Recovering/Resolving]
  - Cerebral infarction [Recovering/Resolving]
  - Decreased appetite [Recovering/Resolving]

NARRATIVE: CASE EVENT DATE: 20190904
